FAERS Safety Report 17191592 (Version 1)
Quarter: 2019Q4

REPORT INFORMATION
  Report Type: Spontaneous
  Country: US (occurrence: US)
  Receive Date: 20191223
  Receipt Date: 20191223
  Transmission Date: 20200122
  Serious: Yes (Other)
  Sender: FDA-Public Use
  Company Number: US-PFIZER INC-2019516811

PATIENT
  Age: 49 Year
  Sex: Female
  Weight: 68.27 kg

DRUGS (1)
  1. IBRANCE [Suspect]
     Active Substance: PALBOCICLIB
     Indication: BREAST CANCER
     Dosage: 125 MG, CYCLIC, [DAILY ON DAYS D1-D21, EVERY 28 DAYS]
     Route: 048
     Dates: start: 20191120, end: 20191218

REACTIONS (1)
  - Neutropenia [Unknown]
